FAERS Safety Report 7344740-3 (Version None)
Quarter: 2011Q1

REPORT INFORMATION
  Report Type: 
  Country: None (occurrence: None)
  Receive Date: 20110307
  Receipt Date: 20110307
  Transmission Date: 20110831
  Serious: No
  Sender: FDA-Public Use
  Company Number: None

PATIENT
  Age: 64 Year
  Sex: Male
  Weight: 110 kg

DRUGS (1)
  1. TELAVANCIN HYDROCHLORIDE [Suspect]
     Indication: SEPSIS
     Dates: start: 20100901, end: 20100905

REACTIONS (1)
  - RENAL FAILURE ACUTE [None]
